FAERS Safety Report 13176156 (Version 4)
Quarter: 2017Q3

REPORT INFORMATION
  Report Type: Spontaneous
  Country: PE (occurrence: PE)
  Receive Date: 20170201
  Receipt Date: 20170728
  Transmission Date: 20171127
  Serious: Yes (Other)
  Sender: FDA-Public Use
  Company Number: PE-PFIZER INC-2017037950

PATIENT
  Age: 42 Year
  Sex: Female

DRUGS (2)
  1. LYRICA [Suspect]
     Active Substance: PREGABALIN
     Indication: HERNIA PAIN
     Dosage: 75 MG, 2X/DAY (1 CAPSULE IN THE BREAKFAST AND 1 CAPSULE IN THE NIGHT)
     Dates: end: 201703
  2. LYRICA [Suspect]
     Active Substance: PREGABALIN
     Indication: HERPES VIRUS INFECTION
     Dosage: 37.5 MG, 2X/DAY

REACTIONS (8)
  - Eye disorder [Unknown]
  - Hypoacusis [Unknown]
  - Drug prescribing error [Unknown]
  - Macular degeneration [Unknown]
  - Blindness unilateral [Unknown]
  - Dizziness [Recovered/Resolved]
  - Drug ineffective [Unknown]
  - Intentional product use issue [Unknown]
